FAERS Safety Report 22519713 (Version 1)
Quarter: 2023Q2

REPORT INFORMATION
  Report Type: Spontaneous
  Country: US (occurrence: US)
  Receive Date: 20230605
  Receipt Date: 20230605
  Transmission Date: 20230721
  Serious: Yes (Other)
  Sender: FDA-Public Use
  Company Number: US-CIPLA LTD.-2023US02954

PATIENT

DRUGS (3)
  1. NADOLOL [Suspect]
     Active Substance: NADOLOL
     Indication: Cardiac disorder
     Dosage: UNK
     Route: 065
  2. NADOLOL [Suspect]
     Active Substance: NADOLOL
     Dosage: 80 MG, UNK
     Route: 065
  3. NADOLOL [Suspect]
     Active Substance: NADOLOL
     Dosage: 40 MG, UNK
     Route: 065

REACTIONS (3)
  - Oligohydramnios [Unknown]
  - Foetal growth restriction [Unknown]
  - Exposure during pregnancy [Unknown]
